FAERS Safety Report 6878889-6 (Version None)
Quarter: 2010Q3

REPORT INFORMATION
  Report Type: 
  Country: None (occurrence: None)
  Receive Date: 20100728
  Receipt Date: 20100715
  Transmission Date: 20110219
  Serious: Yes (Death, Hospitalization)
  Sender: FDA-Public Use
  Company Number: JP-BAYER-201013566BYL

PATIENT
  Age: 73 Year
  Sex: Female
  Weight: 52 kg

DRUGS (13)
  1. NEXAVAR [Suspect]
     Indication: HEPATIC NEOPLASM MALIGNANT
     Dosage: TOTAL DAILY DOSE: 800 MG  UNIT DOSE: 200 MG
     Route: 048
     Dates: start: 20090622, end: 20090627
  2. NEXAVAR [Suspect]
     Dosage: UNIT DOSE: 200 MG
     Route: 048
     Dates: start: 20090629, end: 20090707
  3. AZELASTINE HCL [Concomitant]
     Dosage: UNIT DOSE: 16 MG
     Route: 048
  4. URSO 250 [Concomitant]
     Dosage: UNIT DOSE: 100 MG
     Route: 048
  5. METHYCOBAL [Concomitant]
     Dosage: UNIT DOSE: 500 ?G
     Route: 048
  6. NEUROTROPIN [Concomitant]
     Dosage: SINCE BEFORE ADMINISTRATION
     Route: 048
  7. ALINAMIN F [Concomitant]
     Dosage: UNIT DOSE: 25 MG
     Route: 048
  8. LIVACT [Concomitant]
     Dosage: UNIT DOSE: 4.15 G
     Route: 048
  9. ALDACTONE [Concomitant]
     Dosage: UNIT DOSE: 25 MG
     Route: 048
  10. LASIX [Concomitant]
     Dosage: UNIT DOSE: 20 MG
     Route: 048
  11. LOXONIN [Concomitant]
     Dosage: UNIT DOSE: 60 MG
     Route: 048
  12. SELBEX [Concomitant]
     Indication: GASTRITIS PROPHYLAXIS
     Dosage: UNIT DOSE: 5 MG
     Route: 048
  13. LENDORMIN [Concomitant]
     Dosage: UNIT DOSE: 0.25 MG
     Route: 048

REACTIONS (4)
  - HEPATIC NEOPLASM MALIGNANT [None]
  - LIVER DISORDER [None]
  - NAUSEA [None]
  - RASH [None]
